FAERS Safety Report 12958821 (Version 1)
Quarter: 2016Q4

REPORT INFORMATION
  Report Type: Spontaneous
  Country: US (occurrence: US)
  Receive Date: 20161117
  Receipt Date: 20161117
  Transmission Date: 20170207
  Serious: Yes (Hospitalization)
  Sender: FDA-Public Use
  Company Number: None

PATIENT
  Age: 65 Year
  Sex: Male

DRUGS (17)
  1. CLOPIDOGREL [Concomitant]
     Active Substance: CLOPIDOGREL BISULFATE
  2. OMEPRAZOLE. [Concomitant]
     Active Substance: OMEPRAZOLE
  3. CARVEDILOL. [Concomitant]
     Active Substance: CARVEDILOL
  4. NYSTATIN TOPICAL [Concomitant]
  5. COLCHICINE. [Concomitant]
     Active Substance: COLCHICINE
  6. HYDRALAZINE [Concomitant]
     Active Substance: HYDRALAZINE HYDROCHLORIDE
  7. ISOSORBIDE DINITRATE. [Concomitant]
     Active Substance: ISOSORBIDE DINITRATE
  8. WARFARIN [Concomitant]
     Active Substance: WARFARIN
  9. ZINC OXIDE. [Concomitant]
     Active Substance: ZINC OXIDE
  10. ASPIRIN. [Concomitant]
     Active Substance: ASPIRIN
  11. BUMETANIDE. [Concomitant]
     Active Substance: BUMETANIDE
  12. ATORVASTATIN [Concomitant]
     Active Substance: ATORVASTATIN
  13. SEVELAMER [Concomitant]
     Active Substance: SEVELAMER
  14. INSULIN DETEMIR [Suspect]
     Active Substance: INSULIN DETEMIR
     Indication: HYPERGLYCAEMIA
     Route: 058
     Dates: start: 20161011
  15. DIGOXIN. [Concomitant]
     Active Substance: DIGOXIN
  16. POLYETHYLENE GLYCOL 3350. [Concomitant]
     Active Substance: POLYETHYLENE GLYCOL 3350
  17. OXYCODONE-ACETAMINOPHEN [Concomitant]
     Active Substance: ACETAMINOPHEN\OXYCODONE HYDROCHLORIDE

REACTIONS (1)
  - Hypoglycaemia [None]

NARRATIVE: CASE EVENT DATE: 20161011
